FAERS Safety Report 7152440-8 (Version None)
Quarter: 2010Q4

REPORT INFORMATION
  Report Type: 
  Country: None (occurrence: None)
  Receive Date: 20101208
  Receipt Date: 20101208
  Transmission Date: 20110411
  Serious: Yes (Life-Threatening)
  Sender: FDA-Public Use
  Company Number: None

PATIENT
  Age: 83 Year
  Sex: Female
  Weight: 71.6683 kg

DRUGS (2)
  1. PLAVIX [Suspect]
     Indication: ANGINA UNSTABLE
     Dosage: ONE TABLET DAILY PO
     Route: 048
  2. NITROGLYCERIN [Suspect]
     Indication: ANGINA UNSTABLE
     Dosage: ONE TABLET PRN CHEST PAIN X 3 SL
     Route: 060
     Dates: start: 20101121, end: 20101203

REACTIONS (3)
  - CHEST PAIN [None]
  - CONVULSION [None]
  - LOSS OF CONSCIOUSNESS [None]
